FAERS Safety Report 12315629 (Version 4)
Quarter: 2016Q3

REPORT INFORMATION
  Report Type: Spontaneous
  Country: ES (occurrence: ES)
  Receive Date: 20160428
  Receipt Date: 20160705
  Transmission Date: 20161109
  Serious: Yes (Hospitalization, Other)
  Sender: FDA-Public Use
  Company Number: ES-ABBVIE-16P-144-1616265-00

PATIENT
  Age: 27 Year
  Sex: Male
  Weight: 69.8 kg

DRUGS (2)
  1. KREON [Suspect]
     Active Substance: PANCRELIPASE
     Dosage: 40.000 U WITH EVERY MAIN MEAL (3 TIMES/DAY) AND 20.000 WITH EVERY SNACK (1 OR 2 TIMES/DAY)
     Route: 065
  2. KREON [Suspect]
     Active Substance: PANCRELIPASE
     Indication: PANCREATITIS CHRONIC
     Dosage: 150.000 UI AS MINIMUM PER DAY, BUT SOMETIMES COULD BE MORE AND SOMETIMES LESS
     Route: 065

REACTIONS (6)
  - Appendicitis [Recovered/Resolved]
  - Appendix disorder [Not Recovered/Not Resolved]
  - Abdominal pain lower [Not Recovered/Not Resolved]
  - Haemorrhoids [Not Recovered/Not Resolved]
  - Fibrosing colonopathy [Not Recovered/Not Resolved]
  - Enterocolitis [Not Recovered/Not Resolved]

NARRATIVE: CASE EVENT DATE: 200912
